FAERS Safety Report 17347855 (Version 5)
Quarter: 2021Q3

REPORT INFORMATION
  Report Type: Report from Study
  Country: KR (occurrence: KR)
  Receive Date: 20200130
  Receipt Date: 20210916
  Transmission Date: 20211014
  Serious: Yes (Hospitalization)
  Sender: FDA-Public Use
  Company Number: KR-EISAI MEDICAL RESEARCH-EC-2020-068911

PATIENT
  Age: 3 Year
  Sex: Male
  Weight: 17.7 kg

DRUGS (16)
  1. PERAMPANEL [Suspect]
     Active Substance: PERAMPANEL
     Indication: LENNOX-GASTAUT SYNDROME
     Route: 048
     Dates: start: 20191213, end: 20191219
  2. PERAMPANEL [Suspect]
     Active Substance: PERAMPANEL
     Route: 048
     Dates: start: 20200710, end: 20200714
  3. SENTIL [Concomitant]
     Active Substance: CLOBAZAM
  4. PERAMPANEL [Suspect]
     Active Substance: PERAMPANEL
     Route: 048
     Dates: start: 20191220, end: 20191226
  5. PERAMPANEL [Suspect]
     Active Substance: PERAMPANEL
     Route: 048
     Dates: start: 20200630, end: 20200704
  6. PERAMPANEL [Suspect]
     Active Substance: PERAMPANEL
     Route: 048
     Dates: start: 20200705, end: 20200709
  7. PERAMPANEL [Suspect]
     Active Substance: PERAMPANEL
     Route: 048
     Dates: start: 20191227, end: 20200109
  8. KEPPRA [Concomitant]
     Active Substance: LEVETIRACETAM
  9. ORFIL [Concomitant]
     Active Substance: VALPROATE SODIUM
  10. PERAMPANEL [Suspect]
     Active Substance: PERAMPANEL
     Route: 048
     Dates: start: 20200122, end: 20200518
  11. TOPAMAX [Concomitant]
     Active Substance: TOPIRAMATE
  12. PERAMPANEL [Suspect]
     Active Substance: PERAMPANEL
     Route: 048
     Dates: start: 20200110, end: 20200121
  13. PERAMPANEL [Suspect]
     Active Substance: PERAMPANEL
     Route: 048
     Dates: start: 20200428, end: 20200518
  14. PERAMPANEL [Suspect]
     Active Substance: PERAMPANEL
     Route: 048
     Dates: start: 20200519, end: 20200629
  15. PERAMPANEL [Suspect]
     Active Substance: PERAMPANEL
     Route: 048
     Dates: start: 20200720, end: 20200724
  16. PERAMPANEL [Suspect]
     Active Substance: PERAMPANEL
     Route: 048
     Dates: start: 20200715, end: 20200719

REACTIONS (2)
  - Lower respiratory tract infection viral [Recovered/Resolved]
  - Decreased appetite [Recovered/Resolved]

NARRATIVE: CASE EVENT DATE: 20200122
